FAERS Safety Report 22837650 (Version 9)
Quarter: 2025Q1

REPORT INFORMATION
  Report Type: Spontaneous
  Country: DE (occurrence: DE)
  Receive Date: 20230818
  Receipt Date: 20250306
  Transmission Date: 20250409
  Serious: Yes (Death, Life-Threatening, Hospitalization, Disabling, Congenital Anomaly, Other)
  Sender: AMERICAN REGENT
  Company Number: DE-AMERICAN REGENT INC-2023001907

PATIENT
  Age: 80 Year
  Sex: Male
  Weight: 69 kg

DRUGS (624)
  1. FERINJECT [Suspect]
     Active Substance: FERRIC CARBOXYMALTOSE
     Indication: Iron deficiency
     Route: 042
  2. VENOFER [Suspect]
     Active Substance: IRON SUCROSE
     Indication: Iron deficiency
     Route: 042
  3. IRON POLYMALTOSE [Suspect]
     Active Substance: IRON POLYMALTOSE
     Indication: Iron deficiency
     Route: 065
  4. IRON POLYMALTOSE [Suspect]
     Active Substance: IRON POLYMALTOSE
     Route: 065
  5. FERROUS FUMARATE [Suspect]
     Active Substance: FERROUS FUMARATE
     Indication: Iron deficiency
     Route: 065
  6. FERROUS FUMARATE [Suspect]
     Active Substance: FERROUS FUMARATE
     Route: 065
  7. SOLUBLE FIBER [Suspect]
     Active Substance: METHYLCELLULOSE (4000 CPS)
     Indication: Vitamin supplementation
     Route: 065
  8. SOLUBLE FIBER [Suspect]
     Active Substance: METHYLCELLULOSE (4000 CPS)
     Route: 042
  9. PENTOSAN POLYSULFATE SODIUM [Suspect]
     Active Substance: PENTOSAN POLYSULFATE SODIUM
     Indication: Anticoagulant therapy
     Route: 065
  10. PENTOSAN POLYSULFATE SODIUM [Suspect]
     Active Substance: PENTOSAN POLYSULFATE SODIUM
     Route: 065
  11. CEFTRIAXONE [Suspect]
     Active Substance: CEFTRIAXONE
     Indication: Bacterial infection
     Route: 042
  12. CEFTRIAXONE [Suspect]
     Active Substance: CEFTRIAXONE
     Route: 065
  13. CEFTRIAXONE [Suspect]
     Active Substance: CEFTRIAXONE
     Route: 065
  14. CEFTRIAXONE [Suspect]
     Active Substance: CEFTRIAXONE
     Route: 065
  15. FIASP [Suspect]
     Active Substance: INSULIN ASPART
     Indication: Diabetes mellitus
     Route: 048
  16. FIASP [Suspect]
     Active Substance: INSULIN ASPART
     Route: 058
  17. NOVORAPID [Suspect]
     Active Substance: INSULIN ASPART
     Indication: Diabetes mellitus
     Route: 065
  18. NOVORAPID [Suspect]
     Active Substance: INSULIN ASPART
     Route: 058
  19. NOVORAPID [Suspect]
     Active Substance: INSULIN ASPART
     Route: 048
  20. SODIUM PHOSPHATE, MONOBASIC [Suspect]
     Active Substance: SODIUM PHOSPHATE, MONOBASIC
     Indication: Constipation
     Route: 065
  21. SODIUM PHOSPHATE, MONOBASIC [Suspect]
     Active Substance: SODIUM PHOSPHATE, MONOBASIC
     Route: 054
  22. FOSRENOL [Suspect]
     Active Substance: LANTHANUM CARBONATE
     Indication: Blood phosphorus increased
     Route: 048
  23. FOSRENOL [Suspect]
     Active Substance: LANTHANUM CARBONATE
     Indication: Hyperphosphataemia
     Route: 048
  24. FOSRENOL [Suspect]
     Active Substance: LANTHANUM CARBONATE
     Route: 065
  25. FOSRENOL [Suspect]
     Active Substance: LANTHANUM CARBONATE
     Route: 048
  26. FOSRENOL [Suspect]
     Active Substance: LANTHANUM CARBONATE
     Route: 048
  27. ATROVENT [Suspect]
     Active Substance: IPRATROPIUM BROMIDE
     Indication: Dyspnoea
     Route: 055
  28. ATROVENT [Suspect]
     Active Substance: IPRATROPIUM BROMIDE
     Indication: Sleep disorder therapy
     Route: 050
  29. ATROVENT [Suspect]
     Active Substance: IPRATROPIUM BROMIDE
     Indication: Somnolence
     Route: 055
  30. ATROVENT [Suspect]
     Active Substance: IPRATROPIUM BROMIDE
     Route: 055
  31. ATROVENT [Suspect]
     Active Substance: IPRATROPIUM BROMIDE
     Route: 050
  32. ATROVENT [Suspect]
     Active Substance: IPRATROPIUM BROMIDE
     Route: 065
  33. ATROVENT [Suspect]
     Active Substance: IPRATROPIUM BROMIDE
     Route: 050
  34. ATROVENT [Suspect]
     Active Substance: IPRATROPIUM BROMIDE
     Route: 050
  35. ATROVENT [Suspect]
     Active Substance: IPRATROPIUM BROMIDE
     Route: 055
  36. ATROVENT [Suspect]
     Active Substance: IPRATROPIUM BROMIDE
     Route: 050
  37. ATROVENT [Suspect]
     Active Substance: IPRATROPIUM BROMIDE
     Route: 055
  38. ONDANSETRON [Suspect]
     Active Substance: ONDANSETRON
     Indication: Nausea
     Route: 042
  39. ONDANSETRON [Suspect]
     Active Substance: ONDANSETRON
     Indication: Vomiting
     Route: 065
  40. ONDANSETRON [Suspect]
     Active Substance: ONDANSETRON
     Route: 042
  41. ONDANSETRON [Suspect]
     Active Substance: ONDANSETRON
     Route: 042
  42. ONDANSETRON [Suspect]
     Active Substance: ONDANSETRON
     Route: 042
  43. ONDANSETRON [Suspect]
     Active Substance: ONDANSETRON
     Route: 042
  44. ONDANSETRON [Suspect]
     Active Substance: ONDANSETRON
     Route: 042
  45. ONDANSETRON [Suspect]
     Active Substance: ONDANSETRON
     Route: 042
  46. ONDANSETRON [Suspect]
     Active Substance: ONDANSETRON
     Route: 042
  47. ONDANSETRON [Suspect]
     Active Substance: ONDANSETRON
     Route: 042
  48. ONDANSETRON [Suspect]
     Active Substance: ONDANSETRON
     Route: 042
  49. ONDANSETRON [Suspect]
     Active Substance: ONDANSETRON
     Route: 065
  50. ONDANSETRON [Suspect]
     Active Substance: ONDANSETRON
     Route: 042
  51. ONDANSETRON [Suspect]
     Active Substance: ONDANSETRON
     Route: 042
  52. ONDANSETRON [Suspect]
     Active Substance: ONDANSETRON
     Route: 065
  53. ONDANSETRON [Suspect]
     Active Substance: ONDANSETRON
     Route: 042
  54. ONDANSETRON [Suspect]
     Active Substance: ONDANSETRON
     Route: 042
  55. ONDANSETRON [Suspect]
     Active Substance: ONDANSETRON
     Route: 042
  56. ARANESP [Suspect]
     Active Substance: DARBEPOETIN ALFA
     Indication: Anaemia
     Route: 042
  57. ARANESP [Suspect]
     Active Substance: DARBEPOETIN ALFA
     Route: 042
  58. ARANESP [Suspect]
     Active Substance: DARBEPOETIN ALFA
     Route: 042
  59. ARANESP [Suspect]
     Active Substance: DARBEPOETIN ALFA
     Route: 042
  60. ARANESP [Suspect]
     Active Substance: DARBEPOETIN ALFA
     Route: 042
  61. ARANESP [Suspect]
     Active Substance: DARBEPOETIN ALFA
     Route: 042
  62. ARANESP [Suspect]
     Active Substance: DARBEPOETIN ALFA
     Route: 042
  63. ARANESP [Suspect]
     Active Substance: DARBEPOETIN ALFA
     Route: 042
  64. ARANESP [Suspect]
     Active Substance: DARBEPOETIN ALFA
     Route: 042
  65. ARANESP [Suspect]
     Active Substance: DARBEPOETIN ALFA
     Route: 042
  66. ARANESP [Suspect]
     Active Substance: DARBEPOETIN ALFA
     Route: 042
  67. ARANESP [Suspect]
     Active Substance: DARBEPOETIN ALFA
     Route: 042
  68. ARANESP [Suspect]
     Active Substance: DARBEPOETIN ALFA
     Route: 042
  69. ARANESP [Suspect]
     Active Substance: DARBEPOETIN ALFA
     Route: 042
  70. ARANESP [Suspect]
     Active Substance: DARBEPOETIN ALFA
     Route: 042
  71. ARANESP [Suspect]
     Active Substance: DARBEPOETIN ALFA
     Route: 042
  72. ARANESP [Suspect]
     Active Substance: DARBEPOETIN ALFA
     Route: 065
  73. ARANESP [Suspect]
     Active Substance: DARBEPOETIN ALFA
     Route: 042
  74. ARANESP [Suspect]
     Active Substance: DARBEPOETIN ALFA
     Route: 042
  75. ARANESP [Suspect]
     Active Substance: DARBEPOETIN ALFA
     Route: 042
  76. ARANESP [Suspect]
     Active Substance: DARBEPOETIN ALFA
     Route: 042
  77. ARANESP [Suspect]
     Active Substance: DARBEPOETIN ALFA
     Route: 065
  78. ARANESP [Suspect]
     Active Substance: DARBEPOETIN ALFA
     Route: 065
  79. ARANESP [Suspect]
     Active Substance: DARBEPOETIN ALFA
     Route: 042
  80. ARANESP [Suspect]
     Active Substance: DARBEPOETIN ALFA
     Route: 065
  81. ARANESP [Suspect]
     Active Substance: DARBEPOETIN ALFA
     Route: 042
  82. ARANESP [Suspect]
     Active Substance: DARBEPOETIN ALFA
     Route: 042
  83. ARANESP [Suspect]
     Active Substance: DARBEPOETIN ALFA
     Route: 042
  84. ARANESP [Suspect]
     Active Substance: DARBEPOETIN ALFA
     Route: 042
  85. ARANESP [Suspect]
     Active Substance: DARBEPOETIN ALFA
     Route: 042
  86. ARANESP [Suspect]
     Active Substance: DARBEPOETIN ALFA
     Route: 042
  87. ARANESP [Suspect]
     Active Substance: DARBEPOETIN ALFA
     Route: 042
  88. ARANESP [Suspect]
     Active Substance: DARBEPOETIN ALFA
     Route: 065
  89. ARANESP [Suspect]
     Active Substance: DARBEPOETIN ALFA
     Route: 042
  90. ARANESP [Suspect]
     Active Substance: DARBEPOETIN ALFA
     Route: 042
  91. ARANESP [Suspect]
     Active Substance: DARBEPOETIN ALFA
     Route: 065
  92. ARANESP [Suspect]
     Active Substance: DARBEPOETIN ALFA
     Route: 042
  93. ARANESP [Suspect]
     Active Substance: DARBEPOETIN ALFA
     Route: 042
  94. ARANESP [Suspect]
     Active Substance: DARBEPOETIN ALFA
     Route: 042
  95. ARANESP [Suspect]
     Active Substance: DARBEPOETIN ALFA
     Route: 065
  96. ARANESP [Suspect]
     Active Substance: DARBEPOETIN ALFA
     Route: 042
  97. ARANESP [Suspect]
     Active Substance: DARBEPOETIN ALFA
     Route: 042
  98. ARANESP [Suspect]
     Active Substance: DARBEPOETIN ALFA
     Route: 042
  99. ARANESP [Suspect]
     Active Substance: DARBEPOETIN ALFA
     Route: 042
  100. ADVAIR HFA [Suspect]
     Active Substance: FLUTICASONE PROPIONATE\SALMETEROL XINAFOATE
     Indication: Product used for unknown indication
     Route: 065
  101. DALTEPARIN SODIUM [Suspect]
     Active Substance: DALTEPARIN SODIUM
     Indication: Pulmonary embolism
     Route: 065
  102. DALTEPARIN SODIUM [Suspect]
     Active Substance: DALTEPARIN SODIUM
     Route: 065
  103. DALTEPARIN SODIUM [Suspect]
     Active Substance: DALTEPARIN SODIUM
     Route: 065
  104. SODIUM FERRIC GLUCONATE COMPLEX [Suspect]
     Active Substance: SODIUM FERRIC GLUCONATE COMPLEX
     Indication: Iron deficiency
     Route: 042
  105. SODIUM FERRIC GLUCONATE COMPLEX [Suspect]
     Active Substance: SODIUM FERRIC GLUCONATE COMPLEX
     Route: 042
  106. SODIUM FERRIC GLUCONATE COMPLEX [Suspect]
     Active Substance: SODIUM FERRIC GLUCONATE COMPLEX
     Route: 042
  107. SODIUM FERRIC GLUCONATE COMPLEX [Suspect]
     Active Substance: SODIUM FERRIC GLUCONATE COMPLEX
     Route: 042
  108. SODIUM FERRIC GLUCONATE COMPLEX [Suspect]
     Active Substance: SODIUM FERRIC GLUCONATE COMPLEX
     Route: 042
  109. SODIUM FERRIC GLUCONATE COMPLEX [Suspect]
     Active Substance: SODIUM FERRIC GLUCONATE COMPLEX
     Route: 042
  110. SODIUM FERRIC GLUCONATE COMPLEX [Suspect]
     Active Substance: SODIUM FERRIC GLUCONATE COMPLEX
     Route: 042
  111. SODIUM FERRIC GLUCONATE COMPLEX [Suspect]
     Active Substance: SODIUM FERRIC GLUCONATE COMPLEX
     Route: 042
  112. SODIUM FERRIC GLUCONATE COMPLEX [Suspect]
     Active Substance: SODIUM FERRIC GLUCONATE COMPLEX
     Route: 042
  113. SODIUM FERRIC GLUCONATE COMPLEX [Suspect]
     Active Substance: SODIUM FERRIC GLUCONATE COMPLEX
     Route: 042
  114. SODIUM FERRIC GLUCONATE COMPLEX [Suspect]
     Active Substance: SODIUM FERRIC GLUCONATE COMPLEX
     Route: 042
  115. SODIUM FERRIC GLUCONATE COMPLEX [Suspect]
     Active Substance: SODIUM FERRIC GLUCONATE COMPLEX
     Route: 042
  116. SODIUM FERRIC GLUCONATE COMPLEX [Suspect]
     Active Substance: SODIUM FERRIC GLUCONATE COMPLEX
     Route: 042
  117. SODIUM FERRIC GLUCONATE COMPLEX [Suspect]
     Active Substance: SODIUM FERRIC GLUCONATE COMPLEX
     Route: 065
  118. CEFTRIAXONE SODIUM [Suspect]
     Active Substance: CEFTRIAXONE SODIUM
     Indication: Bacterial infection
     Route: 042
  119. CEFTRIAXONE SODIUM [Suspect]
     Active Substance: CEFTRIAXONE SODIUM
     Indication: Sepsis
     Route: 065
  120. CEFTRIAXONE SODIUM [Suspect]
     Active Substance: CEFTRIAXONE SODIUM
     Route: 042
  121. CEFTRIAXONE SODIUM [Suspect]
     Active Substance: CEFTRIAXONE SODIUM
     Route: 042
  122. CEFTRIAXONE SODIUM [Suspect]
     Active Substance: CEFTRIAXONE SODIUM
     Route: 065
  123. MANNITOL [Suspect]
     Active Substance: MANNITOL
     Indication: Nutritional supplementation
     Route: 042
  124. MANNITOL [Suspect]
     Active Substance: MANNITOL
     Route: 042
  125. SODIUM CITRATE [Suspect]
     Active Substance: SODIUM CITRATE
     Indication: Thrombosis
     Route: 065
  126. SODIUM CITRATE [Suspect]
     Active Substance: SODIUM CITRATE
     Route: 065
  127. SODIUM CITRATE [Suspect]
     Active Substance: SODIUM CITRATE
     Route: 065
  128. SODIUM CITRATE [Suspect]
     Active Substance: SODIUM CITRATE
     Route: 065
  129. SODIUM CITRATE [Suspect]
     Active Substance: SODIUM CITRATE
     Route: 065
  130. DISTIGMINE BROMIDE [Suspect]
     Active Substance: DISTIGMINE BROMIDE
     Indication: Dyspnoea
     Route: 065
  131. DISTIGMINE BROMIDE [Suspect]
     Active Substance: DISTIGMINE BROMIDE
     Route: 048
  132. FENOTEROL\IPRATROPIUM [Suspect]
     Active Substance: FENOTEROL\IPRATROPIUM
     Indication: Dyspnoea
     Route: 065
  133. FENOTEROL\IPRATROPIUM [Suspect]
     Active Substance: FENOTEROL\IPRATROPIUM
     Route: 065
  134. BETAMETHASONE DIPROPIONATE [Suspect]
     Active Substance: BETAMETHASONE DIPROPIONATE
     Indication: Swelling
     Route: 065
  135. BETAMETHASONE DIPROPIONATE [Suspect]
     Active Substance: BETAMETHASONE DIPROPIONATE
     Route: 058
  136. BETAMETHASONE DIPROPIONATE [Suspect]
     Active Substance: BETAMETHASONE DIPROPIONATE
     Route: 061
  137. BETAMETHASONE DIPROPIONATE [Suspect]
     Active Substance: BETAMETHASONE DIPROPIONATE
     Route: 061
  138. BETAMETHASONE DIPROPIONATE [Suspect]
     Active Substance: BETAMETHASONE DIPROPIONATE
     Route: 042
  139. BETAMETHASONE DIPROPIONATE [Suspect]
     Active Substance: BETAMETHASONE DIPROPIONATE
     Route: 061
  140. BETAMETHASONE DIPROPIONATE [Suspect]
     Active Substance: BETAMETHASONE DIPROPIONATE
     Route: 061
  141. FURAZOLIDONE [Suspect]
     Active Substance: FURAZOLIDONE
     Indication: Product used for unknown indication
     Route: 065
  142. FURAZOLIDONE [Suspect]
     Active Substance: FURAZOLIDONE
     Route: 065
  143. FURAZOLIDONE [Suspect]
     Active Substance: FURAZOLIDONE
     Route: 042
  144. VITAMIN K1 [Suspect]
     Active Substance: PHYTONADIONE
     Indication: Product used for unknown indication
     Route: 042
  145. VITAMIN K1 [Suspect]
     Active Substance: PHYTONADIONE
     Route: 042
  146. VITAMIN K1 [Suspect]
     Active Substance: PHYTONADIONE
     Route: 042
  147. VITAMIN K1 [Suspect]
     Active Substance: PHYTONADIONE
     Route: 065
  148. VITAMIN K1 [Suspect]
     Active Substance: PHYTONADIONE
     Route: 065
  149. HERBALS [Suspect]
     Active Substance: HERBALS
     Indication: Nutritional supplementation
     Route: 065
  150. HERBALS [Suspect]
     Active Substance: HERBALS
     Route: 065
  151. SODIUM PICOSULFATE [Suspect]
     Active Substance: SODIUM PICOSULFATE
     Indication: Analgesic therapy
     Route: 054
  152. SODIUM PICOSULFATE [Suspect]
     Active Substance: SODIUM PICOSULFATE
     Indication: Constipation
     Route: 054
  153. SODIUM PICOSULFATE [Suspect]
     Active Substance: SODIUM PICOSULFATE
     Route: 065
  154. SODIUM PICOSULFATE [Suspect]
     Active Substance: SODIUM PICOSULFATE
     Route: 054
  155. SODIUM PICOSULFATE [Suspect]
     Active Substance: SODIUM PICOSULFATE
     Route: 065
  156. SODIUM PHOSPHATE [Suspect]
     Active Substance: SODIUM PHOSPHATE
     Indication: Constipation
     Route: 054
  157. SODIUM PHOSPHATE [Suspect]
     Active Substance: SODIUM PHOSPHATE
     Route: 065
  158. BISMUTH SUBNITRATE\MAGNESIUM OXIDE\MAGNESIUM TRISILICATE\SODIUM PHOSPH [Suspect]
     Active Substance: BISMUTH SUBNITRATE\MAGNESIUM OXIDE\MAGNESIUM TRISILICATE\SODIUM PHOSPHATE, MONOBASIC, ANHYDROUS
     Indication: Product used for unknown indication
     Route: 054
  159. BISMUTH SUBNITRATE\MAGNESIUM OXIDE\MAGNESIUM TRISILICATE\SODIUM PHOSPH [Suspect]
     Active Substance: BISMUTH SUBNITRATE\MAGNESIUM OXIDE\MAGNESIUM TRISILICATE\SODIUM PHOSPHATE, MONOBASIC, ANHYDROUS
     Route: 065
  160. BISMUTH SUBNITRATE\MAGNESIUM OXIDE\MAGNESIUM TRISILICATE\SODIUM PHOSPH [Suspect]
     Active Substance: BISMUTH SUBNITRATE\MAGNESIUM OXIDE\MAGNESIUM TRISILICATE\SODIUM PHOSPHATE, MONOBASIC, ANHYDROUS
     Route: 065
  161. BISMUTH SUBNITRATE\MAGNESIUM OXIDE\MAGNESIUM TRISILICATE\SODIUM PHOSPH [Suspect]
     Active Substance: BISMUTH SUBNITRATE\MAGNESIUM OXIDE\MAGNESIUM TRISILICATE\SODIUM PHOSPHATE, MONOBASIC, ANHYDROUS
     Route: 065
  162. SUCROSE [Suspect]
     Active Substance: SUCROSE
     Indication: Iron deficiency
     Route: 065
  163. SUCROSE [Suspect]
     Active Substance: SUCROSE
     Route: 065
  164. SUCROSE [Suspect]
     Active Substance: SUCROSE
     Route: 065
  165. ALBUTEROL SULFATE [Suspect]
     Active Substance: ALBUTEROL SULFATE
     Indication: Chronic obstructive pulmonary disease
     Route: 065
  166. ALBUTEROL SULFATE [Suspect]
     Active Substance: ALBUTEROL SULFATE
     Route: 065
  167. ALBUTEROL SULFATE [Suspect]
     Active Substance: ALBUTEROL SULFATE
     Route: 065
  168. ALBUTEROL SULFATE [Suspect]
     Active Substance: ALBUTEROL SULFATE
     Route: 065
  169. ALBUTEROL SULFATE [Suspect]
     Active Substance: ALBUTEROL SULFATE
     Route: 065
  170. ALBUTEROL SULFATE [Suspect]
     Active Substance: ALBUTEROL SULFATE
     Route: 055
  171. ALBUTEROL SULFATE [Suspect]
     Active Substance: ALBUTEROL SULFATE
     Route: 065
  172. XANTOFYL PALMITATE [Suspect]
     Active Substance: XANTOFYL PALMITATE
     Indication: Nutritional supplementation
     Route: 042
  173. XANTOFYL PALMITATE [Suspect]
     Active Substance: XANTOFYL PALMITATE
     Route: 065
  174. DULCOLAX (BISACODYL) [Suspect]
     Active Substance: BISACODYL
     Indication: Ventricular fibrillation
     Route: 065
  175. DULCOLAX (BISACODYL) [Suspect]
     Active Substance: BISACODYL
     Indication: Constipation
     Route: 054
  176. DULCOLAX (BISACODYL) [Suspect]
     Active Substance: BISACODYL
     Route: 054
  177. PYRIDOXINE HYDROCHLORIDE [Suspect]
     Active Substance: PYRIDOXINE HYDROCHLORIDE
     Indication: Vitamin supplementation
     Route: 048
  178. PYRIDOXINE HYDROCHLORIDE [Suspect]
     Active Substance: PYRIDOXINE HYDROCHLORIDE
     Indication: Analgesic therapy
     Route: 048
  179. PYRIDOXINE HYDROCHLORIDE [Suspect]
     Active Substance: PYRIDOXINE HYDROCHLORIDE
     Route: 048
  180. PYRIDOXINE HYDROCHLORIDE [Suspect]
     Active Substance: PYRIDOXINE HYDROCHLORIDE
     Route: 048
  181. PYRIDOXINE HYDROCHLORIDE [Suspect]
     Active Substance: PYRIDOXINE HYDROCHLORIDE
     Route: 048
  182. PYRIDOXINE HYDROCHLORIDE [Suspect]
     Active Substance: PYRIDOXINE HYDROCHLORIDE
     Route: 048
  183. HYDROMORPHONE [Suspect]
     Active Substance: HYDROMORPHONE
     Indication: Analgesic therapy
     Route: 058
  184. HYDROMORPHONE [Suspect]
     Active Substance: HYDROMORPHONE
     Route: 058
  185. HYDROMORPHONE [Suspect]
     Active Substance: HYDROMORPHONE
     Route: 058
  186. HYDROMORPHONE [Suspect]
     Active Substance: HYDROMORPHONE
     Route: 058
  187. HYDROMORPHONE [Suspect]
     Active Substance: HYDROMORPHONE
     Route: 065
  188. HYDROMORPHONE [Suspect]
     Active Substance: HYDROMORPHONE
     Route: 058
  189. HYDROMORPHONE [Suspect]
     Active Substance: HYDROMORPHONE
     Route: 058
  190. HYDROMORPHONE [Suspect]
     Active Substance: HYDROMORPHONE
     Route: 058
  191. HYDROMORPHONE [Suspect]
     Active Substance: HYDROMORPHONE
     Route: 058
  192. HYDROMORPHONE [Suspect]
     Active Substance: HYDROMORPHONE
     Route: 058
  193. HYDROMORPHONE [Suspect]
     Active Substance: HYDROMORPHONE
     Route: 058
  194. HYDROMORPHONE [Suspect]
     Active Substance: HYDROMORPHONE
     Route: 058
  195. HYDROMORPHONE [Suspect]
     Active Substance: HYDROMORPHONE
     Route: 065
  196. HYDROMORPHONE [Suspect]
     Active Substance: HYDROMORPHONE
     Route: 058
  197. HYDROMORPHONE [Suspect]
     Active Substance: HYDROMORPHONE
     Route: 058
  198. HYDROMORPHONE [Suspect]
     Active Substance: HYDROMORPHONE
     Route: 058
  199. ACETAMINOPHEN [Suspect]
     Active Substance: ACETAMINOPHEN
     Indication: Analgesic therapy
     Route: 048
  200. ACETAMINOPHEN [Suspect]
     Active Substance: ACETAMINOPHEN
     Route: 065
  201. ACETAMINOPHEN [Suspect]
     Active Substance: ACETAMINOPHEN
     Route: 042
  202. ACETAMINOPHEN [Suspect]
     Active Substance: ACETAMINOPHEN
     Route: 065
  203. ALLOPURINOL [Suspect]
     Active Substance: ALLOPURINOL
     Indication: Blood uric acid increased
     Route: 048
  204. ALLOPURINOL [Suspect]
     Active Substance: ALLOPURINOL
     Route: 048
  205. ALLOPURINOL [Suspect]
     Active Substance: ALLOPURINOL
     Route: 048
  206. ALBUTEROL [Suspect]
     Active Substance: ALBUTEROL
     Indication: Chronic obstructive pulmonary disease
     Route: 055
  207. ALLANTOIN [Suspect]
     Active Substance: ALLANTOIN
     Indication: Constipation
     Route: 065
  208. ALLANTOIN [Suspect]
     Active Substance: ALLANTOIN
     Route: 065
  209. ALLANTOIN [Suspect]
     Active Substance: ALLANTOIN
     Route: 048
  210. POTASSIUM CHLORIDE [Suspect]
     Active Substance: POTASSIUM CHLORIDE
     Indication: Constipation
     Route: 048
  211. POTASSIUM CHLORIDE [Suspect]
     Active Substance: POTASSIUM CHLORIDE
     Route: 048
  212. .BETA.-CAROTENE [Suspect]
     Active Substance: .BETA.-CAROTENE
     Indication: Nutritional supplementation
     Route: 042
  213. .BETA.-CAROTENE [Suspect]
     Active Substance: .BETA.-CAROTENE
     Route: 065
  214. .BETA.-CAROTENE [Suspect]
     Active Substance: .BETA.-CAROTENE
     Route: 065
  215. UMECLIDINIUM BROMIDE [Suspect]
     Active Substance: UMECLIDINIUM BROMIDE
     Indication: Dyspnoea
     Route: 048
  216. UMECLIDINIUM BROMIDE [Suspect]
     Active Substance: UMECLIDINIUM BROMIDE
     Route: 048
  217. LANSOPRAZOLE [Suspect]
     Active Substance: LANSOPRAZOLE
     Indication: Antacid therapy
     Route: 048
  218. LANSOPRAZOLE [Suspect]
     Active Substance: LANSOPRAZOLE
     Route: 048
  219. PHYTONADIONE [Suspect]
     Active Substance: PHYTONADIONE
     Indication: Vitamin supplementation
     Route: 042
  220. PHYTONADIONE [Suspect]
     Active Substance: PHYTONADIONE
     Route: 065
  221. PHYTONADIONE [Suspect]
     Active Substance: PHYTONADIONE
     Route: 065
  222. PHYTONADIONE [Suspect]
     Active Substance: PHYTONADIONE
     Route: 065
  223. PHYTONADIONE [Suspect]
     Active Substance: PHYTONADIONE
     Route: 042
  224. ASCORBIC ACID\PEG-3350\POTASSIUM CHLORIDE\SODIUM (ASCORBATE/CHLORIDE/S [Suspect]
     Active Substance: ASCORBIC ACID\POLYETHYLENE GLYCOL 3350\POTASSIUM CHLORIDE\SODIUM ASCORBATE\SODIUM CHLORIDE\SODIUM SU
     Indication: Constipation
     Route: 048
  225. ASCORBIC ACID\PEG-3350\POTASSIUM CHLORIDE\SODIUM (ASCORBATE/CHLORIDE/S [Suspect]
     Active Substance: ASCORBIC ACID\POLYETHYLENE GLYCOL 3350\POTASSIUM CHLORIDE\SODIUM ASCORBATE\SODIUM CHLORIDE\SODIUM SU
     Indication: Iron deficiency
     Route: 055
  226. ASCORBIC ACID\PEG-3350\POTASSIUM CHLORIDE\SODIUM (ASCORBATE/CHLORIDE/S [Suspect]
     Active Substance: ASCORBIC ACID\POLYETHYLENE GLYCOL 3350\POTASSIUM CHLORIDE\SODIUM ASCORBATE\SODIUM CHLORIDE\SODIUM SU
     Route: 048
  227. ASCORBIC ACID\PEG-3350\POTASSIUM CHLORIDE\SODIUM (ASCORBATE/CHLORIDE/S [Suspect]
     Active Substance: ASCORBIC ACID\POLYETHYLENE GLYCOL 3350\POTASSIUM CHLORIDE\SODIUM ASCORBATE\SODIUM CHLORIDE\SODIUM SU
     Route: 048
  228. ASCORBIC ACID\PEG-3350\POTASSIUM CHLORIDE\SODIUM (ASCORBATE/CHLORIDE/S [Suspect]
     Active Substance: ASCORBIC ACID\POLYETHYLENE GLYCOL 3350\POTASSIUM CHLORIDE\SODIUM ASCORBATE\SODIUM CHLORIDE\SODIUM SU
     Route: 065
  229. ASCORBIC ACID\PEG-3350\POTASSIUM CHLORIDE\SODIUM (ASCORBATE/CHLORIDE/S [Suspect]
     Active Substance: ASCORBIC ACID\POLYETHYLENE GLYCOL 3350\POTASSIUM CHLORIDE\SODIUM ASCORBATE\SODIUM CHLORIDE\SODIUM SU
     Route: 048
  230. ASCORBIC ACID\PEG-3350\POTASSIUM CHLORIDE\SODIUM (ASCORBATE/CHLORIDE/S [Suspect]
     Active Substance: ASCORBIC ACID\POLYETHYLENE GLYCOL 3350\POTASSIUM CHLORIDE\SODIUM ASCORBATE\SODIUM CHLORIDE\SODIUM SU
     Route: 048
  231. DEXTROSE [Suspect]
     Active Substance: DEXTROSE MONOHYDRATE
     Indication: Nutritional supplementation
     Route: 042
  232. DEXTROSE [Suspect]
     Active Substance: DEXTROSE MONOHYDRATE
     Indication: Anticoagulant therapy
     Route: 042
  233. DEXTROSE [Suspect]
     Active Substance: DEXTROSE MONOHYDRATE
     Route: 042
  234. DEXTROSE [Suspect]
     Active Substance: DEXTROSE MONOHYDRATE
     Route: 042
  235. DEXTROSE [Suspect]
     Active Substance: DEXTROSE MONOHYDRATE
     Route: 042
  236. DEXTROSE [Suspect]
     Active Substance: DEXTROSE MONOHYDRATE
     Route: 042
  237. DEXTROSE [Suspect]
     Active Substance: DEXTROSE MONOHYDRATE
     Route: 042
  238. DEXTROSE [Suspect]
     Active Substance: DEXTROSE MONOHYDRATE
     Route: 042
  239. DEXTROSE [Suspect]
     Active Substance: DEXTROSE MONOHYDRATE
     Route: 065
  240. DEXTROSE [Suspect]
     Active Substance: DEXTROSE MONOHYDRATE
     Route: 058
  241. DEXTROSE [Suspect]
     Active Substance: DEXTROSE MONOHYDRATE
     Route: 058
  242. DEXTROSE [Suspect]
     Active Substance: DEXTROSE MONOHYDRATE
     Route: 042
  243. DEXTROSE [Suspect]
     Active Substance: DEXTROSE MONOHYDRATE
     Route: 042
  244. DEXTROSE [Suspect]
     Active Substance: DEXTROSE MONOHYDRATE
     Route: 042
  245. DEXTROSE [Suspect]
     Active Substance: DEXTROSE MONOHYDRATE
     Route: 042
  246. FLUTICASONE [Suspect]
     Active Substance: FLUTICASONE
     Indication: Nutritional supplementation
     Route: 048
  247. FLUTICASONE [Suspect]
     Active Substance: FLUTICASONE
     Indication: Dyspnoea
     Route: 065
  248. FLUTICASONE [Suspect]
     Active Substance: FLUTICASONE
     Indication: Blood phosphorus increased
  249. AMMONIUM CHLORIDE [Suspect]
     Active Substance: AMMONIUM CHLORIDE
     Indication: Thrombosis
     Route: 048
  250. AMMONIUM CHLORIDE [Suspect]
     Active Substance: AMMONIUM CHLORIDE
     Route: 048
  251. AMMONIUM CHLORIDE [Suspect]
     Active Substance: AMMONIUM CHLORIDE
     Route: 065
  252. BISMUTH SUBGALLATE\BUFEXAMAC\LIDOCAINE HYDROCHLORIDE\TITANIUM DIOXIDE [Suspect]
     Active Substance: BISMUTH SUBGALLATE\BUFEXAMAC\LIDOCAINE HYDROCHLORIDE\TITANIUM DIOXIDE
     Indication: Constipation
     Route: 054
  253. BISMUTH SUBGALLATE\BUFEXAMAC\LIDOCAINE HYDROCHLORIDE\TITANIUM DIOXIDE [Suspect]
     Active Substance: BISMUTH SUBGALLATE\BUFEXAMAC\LIDOCAINE HYDROCHLORIDE\TITANIUM DIOXIDE
     Route: 065
  254. DEXILANT [Suspect]
     Active Substance: DEXLANSOPRAZOLE
     Indication: Product used for unknown indication
     Route: 048
  255. DEXILANT [Suspect]
     Active Substance: DEXLANSOPRAZOLE
     Route: 048
  256. DEXILANT [Suspect]
     Active Substance: DEXLANSOPRAZOLE
     Route: 065
  257. INSULIN DEGLUDEC [Suspect]
     Active Substance: INSULIN DEGLUDEC
     Indication: Diabetes mellitus
     Route: 058
  258. ALUMINUM HYDROXIDE\MAGNESIUM HYDROXIDE [Suspect]
     Active Substance: ALUMINUM HYDROXIDE\MAGNESIUM HYDROXIDE
     Indication: Constipation
     Route: 054
  259. DOCUSATE SODIUM [Suspect]
     Active Substance: DOCUSATE SODIUM
     Indication: Product used for unknown indication
     Route: 065
  260. WARFARIN [Suspect]
     Active Substance: WARFARIN
     Indication: Thrombosis
     Route: 048
  261. WARFARIN [Suspect]
     Active Substance: WARFARIN
     Route: 048
  262. WARFARIN [Suspect]
     Active Substance: WARFARIN
     Route: 048
  263. WARFARIN [Suspect]
     Active Substance: WARFARIN
     Route: 065
  264. BISACODYL [Suspect]
     Active Substance: BISACODYL
     Indication: Constipation
     Route: 054
  265. BISACODYL [Suspect]
     Active Substance: BISACODYL
     Indication: Ventricular fibrillation
     Route: 054
  266. BISACODYL [Suspect]
     Active Substance: BISACODYL
     Indication: Drug therapy
     Route: 054
  267. BISACODYL [Suspect]
     Active Substance: BISACODYL
     Indication: Dyspnoea
     Route: 065
  268. UNSPECIFIED INGREDIENT [Suspect]
     Active Substance: UNSPECIFIED INGREDIENT
     Indication: Anticoagulant therapy
     Route: 042
  269. UNSPECIFIED INGREDIENT [Suspect]
     Active Substance: UNSPECIFIED INGREDIENT
     Route: 042
  270. UNSPECIFIED INGREDIENT [Suspect]
     Active Substance: UNSPECIFIED INGREDIENT
     Route: 065
  271. UNSPECIFIED INGREDIENT [Suspect]
     Active Substance: UNSPECIFIED INGREDIENT
     Route: 065
  272. UNSPECIFIED INGREDIENT [Suspect]
     Active Substance: UNSPECIFIED INGREDIENT
     Route: 065
  273. UNSPECIFIED INGREDIENT [Suspect]
     Active Substance: UNSPECIFIED INGREDIENT
     Route: 065
  274. UNSPECIFIED INGREDIENT [Suspect]
     Active Substance: UNSPECIFIED INGREDIENT
     Route: 042
  275. UNSPECIFIED INGREDIENT [Suspect]
     Active Substance: UNSPECIFIED INGREDIENT
     Route: 042
  276. HERBALS\PAULLINIA CUPANA SEED [Suspect]
     Active Substance: HERBALS\PAULLINIA CUPANA SEED
     Indication: Nutritional supplementation
     Route: 042
  277. HERBALS\PAULLINIA CUPANA SEED [Suspect]
     Active Substance: HERBALS\PAULLINIA CUPANA SEED
     Route: 065
  278. HERBALS\PAULLINIA CUPANA SEED [Suspect]
     Active Substance: HERBALS\PAULLINIA CUPANA SEED
     Route: 065
  279. HERBALS\PAULLINIA CUPANA SEED [Suspect]
     Active Substance: HERBALS\PAULLINIA CUPANA SEED
     Route: 042
  280. ROCALTROL [Suspect]
     Active Substance: CALCITRIOL
     Indication: Hypovitaminosis
     Route: 048
  281. ROCALTROL [Suspect]
     Active Substance: CALCITRIOL
     Indication: Vitamin D abnormal
  282. ASCORBIC ACID [Suspect]
     Active Substance: ASCORBIC ACID
     Indication: Constipation
     Route: 065
  283. ASCORBIC ACID [Suspect]
     Active Substance: ASCORBIC ACID
     Route: 048
  284. ASCORBIC ACID [Suspect]
     Active Substance: ASCORBIC ACID
     Route: 048
  285. ASCORBIC ACID [Suspect]
     Active Substance: ASCORBIC ACID
     Route: 065
  286. METAMIZOLE SODIUM [Suspect]
     Active Substance: METAMIZOLE SODIUM
     Indication: Vitamin supplementation
     Route: 065
  287. METAMIZOLE SODIUM [Suspect]
     Active Substance: METAMIZOLE SODIUM
     Route: 065
  288. ALUMINUM HYDROXIDE [Suspect]
     Active Substance: ALUMINUM HYDROXIDE
     Indication: Constipation
     Route: 065
  289. CHLORAMPHENICOL [Suspect]
     Active Substance: CHLORAMPHENICOL
     Indication: Product used for unknown indication
     Route: 065
  290. GABAPENTIN [Suspect]
     Active Substance: GABAPENTIN
     Indication: Neuralgia
     Route: 048
  291. GABAPENTIN [Suspect]
     Active Substance: GABAPENTIN
     Indication: Bacterial infection
     Route: 048
  292. GABAPENTIN [Suspect]
     Active Substance: GABAPENTIN
     Route: 048
  293. GABAPENTIN [Suspect]
     Active Substance: GABAPENTIN
     Route: 065
  294. GABAPENTIN [Suspect]
     Active Substance: GABAPENTIN
     Route: 048
  295. CALCIUM\VITAMIN D [Suspect]
     Active Substance: CALCIUM\VITAMIN D
     Indication: Product used for unknown indication
     Route: 065
  296. HERBALS [Suspect]
     Active Substance: HERBALS
     Indication: Nutritional supplementation
     Route: 065
  297. UMECLIDINIUM BROMIDE\VILANTEROL TRIFENATATE [Suspect]
     Active Substance: UMECLIDINIUM BROMIDE\VILANTEROL TRIFENATATE
     Indication: Dyspnoea
     Route: 048
  298. UMECLIDINIUM BROMIDE\VILANTEROL TRIFENATATE [Suspect]
     Active Substance: UMECLIDINIUM BROMIDE\VILANTEROL TRIFENATATE
     Route: 048
  299. UMECLIDINIUM BROMIDE\VILANTEROL TRIFENATATE [Suspect]
     Active Substance: UMECLIDINIUM BROMIDE\VILANTEROL TRIFENATATE
     Route: 048
  300. DEXTROSE AND SODIUM CHLORIDE [Suspect]
     Active Substance: DEXTROSE MONOHYDRATE\SODIUM CHLORIDE
     Indication: Product used for unknown indication
     Route: 065
  301. DEXTROSE AND SODIUM CHLORIDE [Suspect]
     Active Substance: DEXTROSE MONOHYDRATE\SODIUM CHLORIDE
     Route: 065
  302. DEXTROSE AND SODIUM CHLORIDE [Suspect]
     Active Substance: DEXTROSE MONOHYDRATE\SODIUM CHLORIDE
     Route: 065
  303. DEXTROSE AND SODIUM CHLORIDE [Suspect]
     Active Substance: DEXTROSE MONOHYDRATE\SODIUM CHLORIDE
     Route: 065
  304. CHLORAMPHENICOL\HYDROCORTISONE ACETATE\METRONIDAZOLE\NYSTATIN [Suspect]
     Active Substance: CHLORAMPHENICOL\HYDROCORTISONE ACETATE\METRONIDAZOLE\NYSTATIN
     Indication: Bacterial infection
     Route: 065
  305. CHLORAMPHENICOL\HYDROCORTISONE ACETATE\METRONIDAZOLE\NYSTATIN [Suspect]
     Active Substance: CHLORAMPHENICOL\HYDROCORTISONE ACETATE\METRONIDAZOLE\NYSTATIN
     Indication: Anaemia
  306. DIETARY SUPPLEMENT\HERBALS [Suspect]
     Active Substance: DIETARY SUPPLEMENT\HERBALS
     Indication: Nutritional supplementation
     Route: 065
  307. DIETARY SUPPLEMENT\HERBALS [Suspect]
     Active Substance: DIETARY SUPPLEMENT\HERBALS
     Route: 042
  308. VASOPRESSIN [Suspect]
     Active Substance: VASOPRESSIN
     Indication: Drug therapy
     Route: 042
  309. VASOPRESSIN [Suspect]
     Active Substance: VASOPRESSIN
     Route: 065
  310. VASOPRESSIN [Suspect]
     Active Substance: VASOPRESSIN
     Route: 042
  311. METRONIDAZOLE [Suspect]
     Active Substance: METRONIDAZOLE
     Indication: Bacterial infection
     Route: 048
  312. METRONIDAZOLE [Suspect]
     Active Substance: METRONIDAZOLE
     Route: 048
  313. VILANTEROL TRIFENATATE [Suspect]
     Active Substance: VILANTEROL TRIFENATATE
     Indication: Dyspnoea
     Route: 048
  314. VILANTEROL TRIFENATATE [Suspect]
     Active Substance: VILANTEROL TRIFENATATE
     Indication: Nutritional supplementation
     Route: 065
  315. VILANTEROL TRIFENATATE [Suspect]
     Active Substance: VILANTEROL TRIFENATATE
     Route: 048
  316. VILANTEROL TRIFENATATE [Suspect]
     Active Substance: VILANTEROL TRIFENATATE
     Route: 065
  317. .ALPHA.-TOCOPHEROL [Suspect]
     Active Substance: .ALPHA.-TOCOPHEROL
     Indication: Nutritional supplementation
     Route: 042
  318. .ALPHA.-TOCOPHEROL [Suspect]
     Active Substance: .ALPHA.-TOCOPHEROL
     Route: 065
  319. .ALPHA.-TOCOPHEROL [Suspect]
     Active Substance: .ALPHA.-TOCOPHEROL
     Route: 042
  320. IPRATROPIUM [Suspect]
     Active Substance: IPRATROPIUM
     Indication: Dyspnoea
     Route: 065
  321. IPRATROPIUM [Suspect]
     Active Substance: IPRATROPIUM
     Indication: Sleep disorder therapy
     Route: 006
  322. IPRATROPIUM [Suspect]
     Active Substance: IPRATROPIUM
     Route: 055
  323. IPRATROPIUM [Suspect]
     Active Substance: IPRATROPIUM
     Route: 055
  324. IPRATROPIUM [Suspect]
     Active Substance: IPRATROPIUM
     Route: 055
  325. FLUTICASONE FUROATE\VILANTEROL TRIFENATATE [Suspect]
     Active Substance: FLUTICASONE FUROATE\VILANTEROL TRIFENATATE
     Indication: Nutritional supplementation
     Route: 048
  326. FLUTICASONE FUROATE\VILANTEROL TRIFENATATE [Suspect]
     Active Substance: FLUTICASONE FUROATE\VILANTEROL TRIFENATATE
     Indication: Dyspnoea
     Route: 058
  327. FLUTICASONE FUROATE\VILANTEROL TRIFENATATE [Suspect]
     Active Substance: FLUTICASONE FUROATE\VILANTEROL TRIFENATATE
     Indication: Blood phosphorus increased
     Route: 065
  328. FLUTICASONE FUROATE\VILANTEROL TRIFENATATE [Suspect]
     Active Substance: FLUTICASONE FUROATE\VILANTEROL TRIFENATATE
     Route: 048
  329. FLUTICASONE FUROATE\VILANTEROL TRIFENATATE [Suspect]
     Active Substance: FLUTICASONE FUROATE\VILANTEROL TRIFENATATE
     Route: 065
  330. FLUTICASONE FUROATE\VILANTEROL TRIFENATATE [Suspect]
     Active Substance: FLUTICASONE FUROATE\VILANTEROL TRIFENATATE
     Route: 048
  331. DEXTROSE [Suspect]
     Active Substance: DEXTROSE MONOHYDRATE
     Indication: Nutritional supplementation
     Route: 042
  332. POLYETHYLENE GLYCOL [Suspect]
     Active Substance: POLYETHYLENE GLYCOL
     Indication: Constipation
     Route: 065
  333. POLYETHYLENE GLYCOL [Suspect]
     Active Substance: POLYETHYLENE GLYCOL
     Indication: Iron deficiency
     Route: 048
  334. POLYETHYLENE GLYCOL [Suspect]
     Active Substance: POLYETHYLENE GLYCOL
     Route: 048
  335. POLYETHYLENE GLYCOL [Suspect]
     Active Substance: POLYETHYLENE GLYCOL
     Route: 048
  336. POLYETHYLENE GLYCOL [Suspect]
     Active Substance: POLYETHYLENE GLYCOL
     Route: 042
  337. POLYETHYLENE GLYCOL [Suspect]
     Active Substance: POLYETHYLENE GLYCOL
     Route: 065
  338. POLYETHYLENE GLYCOL [Suspect]
     Active Substance: POLYETHYLENE GLYCOL
     Route: 065
  339. POLYETHYLENE GLYCOL [Suspect]
     Active Substance: POLYETHYLENE GLYCOL
     Route: 042
  340. POLYETHYLENE GLYCOL [Suspect]
     Active Substance: POLYETHYLENE GLYCOL
     Route: 048
  341. POLYETHYLENE GLYCOL [Suspect]
     Active Substance: POLYETHYLENE GLYCOL
     Route: 065
  342. POLYETHYLENE GLYCOL [Suspect]
     Active Substance: POLYETHYLENE GLYCOL
     Route: 065
  343. PROPYLENE GLYCOL [Suspect]
     Active Substance: PROPYLENE GLYCOL
     Indication: Product used for unknown indication
     Route: 065
  344. VITAMIN B6 [Suspect]
     Active Substance: PYRIDOXINE HYDROCHLORIDE
     Indication: Vitamin supplementation
     Route: 048
  345. VITAMIN B6 [Suspect]
     Active Substance: PYRIDOXINE HYDROCHLORIDE
     Route: 048
  346. VITAMIN B6 [Suspect]
     Active Substance: PYRIDOXINE HYDROCHLORIDE
     Route: 048
  347. VITAMIN B6 [Suspect]
     Active Substance: PYRIDOXINE HYDROCHLORIDE
     Route: 048
  348. VITAMIN B6 [Suspect]
     Active Substance: PYRIDOXINE HYDROCHLORIDE
     Route: 048
  349. VITAMIN B6 [Suspect]
     Active Substance: PYRIDOXINE HYDROCHLORIDE
     Route: 048
  350. BETAMETHASONE DIPROPIONATE [Suspect]
     Active Substance: BETAMETHASONE DIPROPIONATE
     Indication: Swelling
     Route: 061
  351. BETAMETHASONE DIPROPIONATE [Suspect]
     Active Substance: BETAMETHASONE DIPROPIONATE
     Route: 061
  352. BETAMETHASONE DIPROPIONATE [Suspect]
     Active Substance: BETAMETHASONE DIPROPIONATE
     Route: 042
  353. BETAMETHASONE DIPROPIONATE [Suspect]
     Active Substance: BETAMETHASONE DIPROPIONATE
     Route: 058
  354. BETAMETHASONE DIPROPIONATE [Suspect]
     Active Substance: BETAMETHASONE DIPROPIONATE
     Route: 061
  355. BETAMETHASONE DIPROPIONATE [Suspect]
     Active Substance: BETAMETHASONE DIPROPIONATE
     Route: 065
  356. ALBUTEROL [Suspect]
     Active Substance: ALBUTEROL
     Indication: Chronic obstructive pulmonary disease
     Route: 055
  357. ALBUTEROL [Suspect]
     Active Substance: ALBUTEROL
     Route: 055
  358. ALBUTEROL [Suspect]
     Active Substance: ALBUTEROL
     Route: 065
  359. ALBUTEROL SULFATE\IPRATROPIUM BROMIDE [Suspect]
     Active Substance: ALBUTEROL SULFATE\IPRATROPIUM BROMIDE
     Indication: Sleep disorder therapy
     Route: 055
  360. ALBUTEROL SULFATE\IPRATROPIUM BROMIDE [Suspect]
     Active Substance: ALBUTEROL SULFATE\IPRATROPIUM BROMIDE
     Indication: Dyspnoea
     Route: 055
  361. ALBUTEROL SULFATE\IPRATROPIUM BROMIDE [Suspect]
     Active Substance: ALBUTEROL SULFATE\IPRATROPIUM BROMIDE
     Route: 065
  362. ALBUTEROL SULFATE\IPRATROPIUM BROMIDE [Suspect]
     Active Substance: ALBUTEROL SULFATE\IPRATROPIUM BROMIDE
     Route: 055
  363. ALBUTEROL SULFATE\IPRATROPIUM BROMIDE [Suspect]
     Active Substance: ALBUTEROL SULFATE\IPRATROPIUM BROMIDE
     Route: 055
  364. RIBOFLAVIN [Suspect]
     Active Substance: RIBOFLAVIN
     Indication: Product used for unknown indication
     Route: 048
  365. ZOCOR [Suspect]
     Active Substance: SIMVASTATIN
     Indication: Blood cholesterol increased
     Route: 048
  366. POLYETHYLENE GLYCOL 3350 [Suspect]
     Active Substance: POLYETHYLENE GLYCOL 3350
     Indication: Constipation
     Route: 048
  367. POLYETHYLENE GLYCOL 3350 [Suspect]
     Active Substance: POLYETHYLENE GLYCOL 3350
     Route: 042
  368. POLYETHYLENE GLYCOL 3350 [Suspect]
     Active Substance: POLYETHYLENE GLYCOL 3350
     Route: 048
  369. POLYETHYLENE GLYCOL 3350 [Suspect]
     Active Substance: POLYETHYLENE GLYCOL 3350
     Route: 048
  370. POLYETHYLENE GLYCOL 3350 [Suspect]
     Active Substance: POLYETHYLENE GLYCOL 3350
     Route: 048
  371. POLYETHYLENE GLYCOL 3350 [Suspect]
     Active Substance: POLYETHYLENE GLYCOL 3350
     Route: 048
  372. SODIUM PHOSPHATE, MONOBASIC [Suspect]
     Active Substance: SODIUM PHOSPHATE, MONOBASIC
     Indication: Constipation
     Route: 054
  373. TRESIBA [Suspect]
     Active Substance: INSULIN DEGLUDEC
     Indication: Diabetes mellitus
     Route: 058
  374. TRESIBA [Suspect]
     Active Substance: INSULIN DEGLUDEC
     Route: 058
  375. TRESIBA [Suspect]
     Active Substance: INSULIN DEGLUDEC
     Route: 065
  376. TRESIBA [Suspect]
     Active Substance: INSULIN DEGLUDEC
     Route: 058
  377. OTRIVIN [Suspect]
     Active Substance: XYLOMETAZOLINE
     Indication: Dyspnoea
     Route: 065
  378. AMINOBENZOIC ACID [Suspect]
     Active Substance: AMINOBENZOIC ACID
     Indication: Product used for unknown indication
     Route: 065
  379. BETAMETHASONE DIPROPIONATE\CLIOQUINOL [Suspect]
     Active Substance: BETAMETHASONE DIPROPIONATE\CLIOQUINOL
     Indication: Swelling
     Route: 065
  380. MELATONIN [Suspect]
     Active Substance: MELATONIN
     Indication: Sleep disorder therapy
     Route: 048
  381. MELATONIN [Suspect]
     Active Substance: MELATONIN
     Route: 048
  382. MELATONIN [Suspect]
     Active Substance: MELATONIN
     Route: 065
  383. PREVACID [Suspect]
     Active Substance: LANSOPRAZOLE
     Indication: Antacid therapy
     Route: 048
  384. PREVACID [Suspect]
     Active Substance: LANSOPRAZOLE
     Route: 065
  385. LYPRESSIN [Suspect]
     Active Substance: LYPRESSIN
     Indication: Drug therapy
     Route: 042
  386. LYPRESSIN [Suspect]
     Active Substance: LYPRESSIN
     Route: 065
  387. LYPRESSIN [Suspect]
     Active Substance: LYPRESSIN
     Route: 042
  388. CALCITRIOL [Suspect]
     Active Substance: CALCITRIOL
     Indication: Vitamin D abnormal
     Route: 048
  389. CALCITRIOL [Suspect]
     Active Substance: CALCITRIOL
     Indication: Hypovitaminosis
     Route: 048
  390. CALCITRIOL [Suspect]
     Active Substance: CALCITRIOL
     Route: 065
  391. CALCITRIOL [Suspect]
     Active Substance: CALCITRIOL
     Route: 065
  392. POLYETHYLENE GLYCOL 4000 [Suspect]
     Active Substance: POLYETHYLENE GLYCOL 4000
     Indication: Constipation
     Route: 048
  393. POLYETHYLENE GLYCOL 4000 [Suspect]
     Active Substance: POLYETHYLENE GLYCOL 4000
     Route: 048
  394. POLYETHYLENE GLYCOL 4000 [Suspect]
     Active Substance: POLYETHYLENE GLYCOL 4000
     Route: 065
  395. IPRATROPIUM BROMIDE\XYLOMETAZOLINE HYDROCHLORIDE [Suspect]
     Active Substance: IPRATROPIUM BROMIDE\XYLOMETAZOLINE HYDROCHLORIDE
     Indication: Dyspnoea
     Route: 065
  396. IPRATROPIUM BROMIDE\XYLOMETAZOLINE HYDROCHLORIDE [Suspect]
     Active Substance: IPRATROPIUM BROMIDE\XYLOMETAZOLINE HYDROCHLORIDE
     Indication: Sleep disorder therapy
     Route: 055
  397. IPRATROPIUM BROMIDE\XYLOMETAZOLINE HYDROCHLORIDE [Suspect]
     Active Substance: IPRATROPIUM BROMIDE\XYLOMETAZOLINE HYDROCHLORIDE
     Route: 065
  398. IPRATROPIUM BROMIDE\XYLOMETAZOLINE HYDROCHLORIDE [Suspect]
     Active Substance: IPRATROPIUM BROMIDE\XYLOMETAZOLINE HYDROCHLORIDE
     Route: 065
  399. OSELTAMIVIR PHOSPHATE [Suspect]
     Active Substance: OSELTAMIVIR PHOSPHATE
     Indication: Product used for unknown indication
     Route: 054
  400. OSELTAMIVIR PHOSPHATE [Suspect]
     Active Substance: OSELTAMIVIR PHOSPHATE
     Route: 065
  401. OSELTAMIVIR PHOSPHATE [Suspect]
     Active Substance: OSELTAMIVIR PHOSPHATE
     Route: 065
  402. OSELTAMIVIR PHOSPHATE [Suspect]
     Active Substance: OSELTAMIVIR PHOSPHATE
     Route: 054
  403. OSELTAMIVIR PHOSPHATE [Suspect]
     Active Substance: OSELTAMIVIR PHOSPHATE
     Route: 042
  404. DIETARY SUPPLEMENT [Suspect]
     Active Substance: DIETARY SUPPLEMENT
     Indication: Vitamin supplementation
     Route: 065
  405. DIETARY SUPPLEMENT [Suspect]
     Active Substance: DIETARY SUPPLEMENT
     Route: 065
  406. ACETAMINOPHEN [Suspect]
     Active Substance: ACETAMINOPHEN
     Indication: Analgesic therapy
     Route: 065
  407. NOREPINEPHRINE [Suspect]
     Active Substance: NOREPINEPHRINE
     Indication: Stress
     Route: 065
  408. NOREPINEPHRINE [Suspect]
     Active Substance: NOREPINEPHRINE
     Route: 042
  409. NOREPINEPHRINE [Suspect]
     Active Substance: NOREPINEPHRINE
     Route: 042
  410. NOREPINEPHRINE [Suspect]
     Active Substance: NOREPINEPHRINE
     Route: 048
  411. NOREPINEPHRINE [Suspect]
     Active Substance: NOREPINEPHRINE
     Route: 042
  412. NOREPINEPHRINE [Suspect]
     Active Substance: NOREPINEPHRINE
     Route: 048
  413. NOREPINEPHRINE [Suspect]
     Active Substance: NOREPINEPHRINE
     Route: 065
  414. NOREPINEPHRINE [Suspect]
     Active Substance: NOREPINEPHRINE
     Route: 042
  415. SODIUM FERRIC GLUCONATE COMPLEX [Suspect]
     Active Substance: SODIUM FERRIC GLUCONATE COMPLEX
     Indication: Iron deficiency
     Route: 042
  416. SODIUM FERRIC GLUCONATE COMPLEX [Suspect]
     Active Substance: SODIUM FERRIC GLUCONATE COMPLEX
     Route: 042
  417. AMIODARONE HYDROCHLORIDE [Suspect]
     Active Substance: AMIODARONE HYDROCHLORIDE
     Indication: Drug therapy
     Route: 042
  418. AMIODARONE HYDROCHLORIDE [Suspect]
     Active Substance: AMIODARONE HYDROCHLORIDE
     Indication: Ventricular fibrillation
     Route: 042
  419. AMIODARONE HYDROCHLORIDE [Suspect]
     Active Substance: AMIODARONE HYDROCHLORIDE
     Route: 065
  420. AMIODARONE HYDROCHLORIDE [Suspect]
     Active Substance: AMIODARONE HYDROCHLORIDE
     Route: 042
  421. AMIODARONE HYDROCHLORIDE [Suspect]
     Active Substance: AMIODARONE HYDROCHLORIDE
     Route: 042
  422. AMIODARONE HYDROCHLORIDE [Suspect]
     Active Substance: AMIODARONE HYDROCHLORIDE
     Route: 042
  423. AMIODARONE HYDROCHLORIDE [Suspect]
     Active Substance: AMIODARONE HYDROCHLORIDE
     Route: 042
  424. AMIODARONE HYDROCHLORIDE [Suspect]
     Active Substance: AMIODARONE HYDROCHLORIDE
     Route: 065
  425. AMIODARONE HYDROCHLORIDE [Suspect]
     Active Substance: AMIODARONE HYDROCHLORIDE
     Route: 065
  426. TRELEGY ELLIPTA [Suspect]
     Active Substance: FLUTICASONE FUROATE\UMECLIDINIUM BROMIDE\VILANTEROL TRIFENATATE
     Indication: Vitamin supplementation
     Route: 065
  427. DIPYRONE [Suspect]
     Active Substance: DIPYRONE
     Indication: Vitamin supplementation
     Route: 030
  428. DIPYRONE [Suspect]
     Active Substance: DIPYRONE
     Route: 030
  429. INSULIN ASPART [Suspect]
     Active Substance: INSULIN ASPART
     Indication: Diabetes mellitus
     Route: 058
  430. ZINC [Suspect]
     Active Substance: ZINC
     Indication: Vitamin supplementation
     Route: 065
  431. FRAGMIN [Suspect]
     Active Substance: DALTEPARIN SODIUM
     Indication: Pulmonary embolism
     Route: 042
  432. FRAGMIN [Suspect]
     Active Substance: DALTEPARIN SODIUM
     Indication: Thrombosis
     Route: 065
  433. FRAGMIN [Suspect]
     Active Substance: DALTEPARIN SODIUM
     Route: 048
  434. FRAGMIN [Suspect]
     Active Substance: DALTEPARIN SODIUM
     Route: 042
  435. FRAGMIN [Suspect]
     Active Substance: DALTEPARIN SODIUM
     Route: 048
  436. FRAGMIN [Suspect]
     Active Substance: DALTEPARIN SODIUM
     Route: 048
  437. FRAGMIN [Suspect]
     Active Substance: DALTEPARIN SODIUM
     Route: 042
  438. HORSE CHESTNUT [Suspect]
     Active Substance: HORSE CHESTNUT
     Indication: Constipation
     Route: 065
  439. HORSE CHESTNUT [Suspect]
     Active Substance: HORSE CHESTNUT
     Route: 065
  440. BIOTIN [Suspect]
     Active Substance: BIOTIN
     Indication: Vitamin supplementation
     Route: 042
  441. BIOTIN [Suspect]
     Active Substance: BIOTIN
     Indication: Constipation
     Route: 065
  442. BIOTIN [Suspect]
     Active Substance: BIOTIN
     Route: 042
  443. BIOTIN [Suspect]
     Active Substance: BIOTIN
     Route: 042
  444. MONOFERRIC [Suspect]
     Active Substance: FERRIC DERISOMALTOSE
     Indication: Nutritional supplementation
     Route: 042
  445. ASIAN GINSENG [Suspect]
     Active Substance: ASIAN GINSENG
     Indication: Nutritional supplementation
     Route: 048
  446. TOCOPHEROL [Suspect]
     Active Substance: TOCOPHEROL
     Indication: Nutritional supplementation
     Route: 042
  447. DOBUTAMINE [Suspect]
     Active Substance: DOBUTAMINE HYDROCHLORIDE
     Indication: Cardiogenic shock
     Route: 042
  448. DOBUTAMINE [Suspect]
     Active Substance: DOBUTAMINE HYDROCHLORIDE
     Route: 042
  449. FENOTEROL HYDROBROMIDE\IPRATROPIUM BROMIDE [Suspect]
     Active Substance: FENOTEROL HYDROBROMIDE\IPRATROPIUM BROMIDE
     Indication: Dyspnoea
     Route: 055
  450. FENOTEROL HYDROBROMIDE\IPRATROPIUM BROMIDE [Suspect]
     Active Substance: FENOTEROL HYDROBROMIDE\IPRATROPIUM BROMIDE
     Route: 055
  451. FENOTEROL HYDROBROMIDE\IPRATROPIUM BROMIDE [Suspect]
     Active Substance: FENOTEROL HYDROBROMIDE\IPRATROPIUM BROMIDE
     Route: 055
  452. FENOTEROL HYDROBROMIDE\IPRATROPIUM BROMIDE [Suspect]
     Active Substance: FENOTEROL HYDROBROMIDE\IPRATROPIUM BROMIDE
     Route: 065
  453. FENOTEROL HYDROBROMIDE\IPRATROPIUM BROMIDE [Suspect]
     Active Substance: FENOTEROL HYDROBROMIDE\IPRATROPIUM BROMIDE
     Route: 055
  454. CALCIUM CHLORIDE\DEXTROSE\POTASSIUM CHLORIDE\SODIUM CHLORIDE\SODIUM LA [Suspect]
     Active Substance: CALCIUM CHLORIDE\DEXTROSE\POTASSIUM CHLORIDE\SODIUM CHLORIDE\SODIUM LACTATE
     Indication: Product used for unknown indication
     Route: 065
  455. HEPARIN SODIUM [Suspect]
     Active Substance: HEPARIN SODIUM
     Indication: Anticoagulant therapy
     Route: 042
  456. HEPARIN SODIUM [Suspect]
     Active Substance: HEPARIN SODIUM
     Route: 042
  457. HEPARIN SODIUM [Suspect]
     Active Substance: HEPARIN SODIUM
     Route: 042
  458. HEPARIN SODIUM [Suspect]
     Active Substance: HEPARIN SODIUM
     Route: 065
  459. HEPARIN SODIUM [Suspect]
     Active Substance: HEPARIN SODIUM
     Route: 042
  460. HEPARIN SODIUM [Suspect]
     Active Substance: HEPARIN SODIUM
     Route: 042
  461. ASCORBIC ACID [Suspect]
     Active Substance: ASCORBIC ACID
     Indication: Vitamin supplementation
     Route: 042
  462. CORTISONE (HYDROCORTISONE) [Suspect]
     Active Substance: HYDROCORTISONE
     Indication: Product used for unknown indication
     Route: 065
  463. BISMUTH SUBNITRATE [Suspect]
     Active Substance: BISMUTH SUBNITRATE
     Indication: Constipation
     Route: 054
  464. BISMUTH SUBNITRATE [Suspect]
     Active Substance: BISMUTH SUBNITRATE
     Route: 065
  465. BISMUTH SUBNITRATE [Suspect]
     Active Substance: BISMUTH SUBNITRATE
     Route: 065
  466. BISMUTH SUBNITRATE [Suspect]
     Active Substance: BISMUTH SUBNITRATE
     Route: 054
  467. STEARIC ACID [Suspect]
     Active Substance: STEARIC ACID
     Indication: Constipation
     Route: 065
  468. SODIUM BICARBONATE [Suspect]
     Active Substance: SODIUM BICARBONATE
     Indication: Nutritional supplementation
     Route: 065
  469. FISH OIL [Suspect]
     Active Substance: FISH OIL
     Indication: Nutritional supplementation
     Route: 065
  470. ALBUTEROL\IPRATROPIUM [Suspect]
     Active Substance: ALBUTEROL\IPRATROPIUM
     Indication: Dyspnoea
     Route: 055
  471. CALCIUM CHLORIDE\DEXTROSE\POTASSIUM CHLORIDE\SODIUM CHLORIDE [Suspect]
     Active Substance: CALCIUM CHLORIDE\DEXTROSE\POTASSIUM CHLORIDE\SODIUM CHLORIDE
     Indication: Nutritional supplementation
     Route: 065
  472. TAMIFLU [Suspect]
     Active Substance: OSELTAMIVIR PHOSPHATE
     Indication: Chronic obstructive pulmonary disease
     Route: 065
  473. TAMIFLU [Suspect]
     Active Substance: OSELTAMIVIR PHOSPHATE
     Route: 065
  474. MAGNESIUM TRISILICATE [Suspect]
     Active Substance: MAGNESIUM TRISILICATE
     Indication: Constipation
     Route: 065
  475. COUMADIN [Suspect]
     Active Substance: WARFARIN SODIUM
     Indication: Thrombosis
     Route: 048
  476. COUMADIN [Suspect]
     Active Substance: WARFARIN SODIUM
     Route: 048
  477. COUMADIN [Suspect]
     Active Substance: WARFARIN SODIUM
     Route: 048
  478. COUMADIN [Suspect]
     Active Substance: WARFARIN SODIUM
     Route: 048
  479. COUMADIN [Suspect]
     Active Substance: WARFARIN SODIUM
     Route: 048
  480. VITAMINS NOS [Suspect]
     Active Substance: VITAMINS
     Indication: Nutritional supplementation
     Route: 042
  481. BISMUTH [Suspect]
     Active Substance: BISMUTH SUBSALICYLATE
     Indication: Constipation
     Route: 065
  482. BISMUTH [Suspect]
     Active Substance: BISMUTH SUBSALICYLATE
     Route: 054
  483. FENOTEROL [Suspect]
     Active Substance: FENOTEROL
     Indication: Dyspnoea
     Route: 065
  484. FENOTEROL [Suspect]
     Active Substance: FENOTEROL
     Route: 065
  485. FENOTEROL [Suspect]
     Active Substance: FENOTEROL
     Route: 065
  486. FENOTEROL [Suspect]
     Active Substance: FENOTEROL
     Route: 050
  487. FENOTEROL [Suspect]
     Active Substance: FENOTEROL
     Route: 050
  488. FENOTEROL [Suspect]
     Active Substance: FENOTEROL
     Route: 065
  489. FENOTEROL [Suspect]
     Active Substance: FENOTEROL
     Route: 050
  490. SIMVASTATIN [Suspect]
     Active Substance: SIMVASTATIN
     Indication: Vitamin supplementation
     Route: 048
  491. SIMVASTATIN [Suspect]
     Active Substance: SIMVASTATIN
     Indication: Blood cholesterol increased
     Route: 065
  492. SIMVASTATIN [Suspect]
     Active Substance: SIMVASTATIN
     Route: 048
  493. SIMVASTATIN [Suspect]
     Active Substance: SIMVASTATIN
     Route: 065
  494. SIMVASTATIN [Suspect]
     Active Substance: SIMVASTATIN
     Route: 048
  495. SIMVASTATIN [Suspect]
     Active Substance: SIMVASTATIN
     Route: 048
  496. HYDROCORTISONE [Suspect]
     Active Substance: HYDROCORTISONE
     Indication: Angioedema
     Route: 051
  497. XYLOMETAZOLINE [Suspect]
     Active Substance: XYLOMETAZOLINE
     Indication: Dyspnoea
     Route: 055
  498. XYLOMETAZOLINE [Suspect]
     Active Substance: XYLOMETAZOLINE
     Route: 055
  499. XYLOMETAZOLINE [Suspect]
     Active Substance: XYLOMETAZOLINE
     Route: 050
  500. XYLOMETAZOLINE [Suspect]
     Active Substance: XYLOMETAZOLINE
     Route: 055
  501. VITAMIN D NOS [Suspect]
     Active Substance: CHOLECALCIFEROL\ERGOCALCIFEROL
     Indication: Product used for unknown indication
     Route: 065
  502. ISOFLAVONES SOY [Suspect]
     Active Substance: ISOFLAVONES SOY
     Indication: Constipation
     Route: 065
  503. CALCIUM [Suspect]
     Active Substance: CALCIUM
     Indication: Product used for unknown indication
     Route: 065
  504. POLYETHYLENE GLYCOL\POTASSIUM CHLORIDE\SODIUM BICARBONATE [Suspect]
     Active Substance: POLYETHYLENE GLYCOL\POTASSIUM CHLORIDE\SODIUM BICARBONATE
     Indication: Constipation
     Route: 065
  505. POLYETHYLENE GLYCOL\POTASSIUM CHLORIDE\SODIUM BICARBONATE [Suspect]
     Active Substance: POLYETHYLENE GLYCOL\POTASSIUM CHLORIDE\SODIUM BICARBONATE
     Route: 048
  506. BREO ELLIPTA [Suspect]
     Active Substance: FLUTICASONE FUROATE\VILANTEROL TRIFENATATE
     Indication: Dyspnoea
     Route: 048
  507. BREO ELLIPTA [Suspect]
     Active Substance: FLUTICASONE FUROATE\VILANTEROL TRIFENATATE
     Indication: Nutritional supplementation
     Route: 065
  508. BREO ELLIPTA [Suspect]
     Active Substance: FLUTICASONE FUROATE\VILANTEROL TRIFENATATE
     Indication: Blood phosphorus increased
     Route: 055
  509. BREO ELLIPTA [Suspect]
     Active Substance: FLUTICASONE FUROATE\VILANTEROL TRIFENATATE
     Route: 048
  510. BREO ELLIPTA [Suspect]
     Active Substance: FLUTICASONE FUROATE\VILANTEROL TRIFENATATE
     Route: 058
  511. BUFEXAMAC [Suspect]
     Active Substance: BUFEXAMAC
     Indication: Constipation
     Route: 065
  512. BUFEXAMAC [Suspect]
     Active Substance: BUFEXAMAC
     Route: 054
  513. ANHYDROUS CITRIC ACID\MAGNESIUM OXIDE\SODIUM PICOSULFATE [Suspect]
     Active Substance: ANHYDROUS CITRIC ACID\MAGNESIUM OXIDE\SODIUM PICOSULFATE
     Indication: Constipation
     Route: 054
  514. BETAMETHASONE DIPROPIONATE\CLIOQUINOL [Suspect]
     Active Substance: BETAMETHASONE DIPROPIONATE\CLIOQUINOL
     Indication: Swelling
     Route: 061
  515. AMLODIPINE [Suspect]
     Active Substance: AMLODIPINE BESYLATE
     Indication: Product used for unknown indication
     Route: 065
  516. XANTOFYL PALMITATE [Suspect]
     Active Substance: XANTOFYL PALMITATE
     Indication: Nutritional supplementation
     Route: 065
  517. XANTOFYL PALMITATE [Suspect]
     Active Substance: XANTOFYL PALMITATE
     Route: 065
  518. XANTOFYL PALMITATE [Suspect]
     Active Substance: XANTOFYL PALMITATE
     Route: 042
  519. XANTOFYL PALMITATE [Suspect]
     Active Substance: XANTOFYL PALMITATE
     Route: 042
  520. XANTOFYL PALMITATE [Suspect]
     Active Substance: XANTOFYL PALMITATE
     Route: 042
  521. XANTOFYL PALMITATE [Suspect]
     Active Substance: XANTOFYL PALMITATE
     Route: 042
  522. XANTOFYL PALMITATE [Suspect]
     Active Substance: XANTOFYL PALMITATE
     Route: 042
  523. ALBUTEROL [Suspect]
     Active Substance: ALBUTEROL
     Indication: Chronic obstructive pulmonary disease
     Route: 055
  524. ALBUTEROL [Suspect]
     Active Substance: ALBUTEROL
     Route: 065
  525. ALBUTEROL [Suspect]
     Active Substance: ALBUTEROL
     Route: 065
  526. ALBUTEROL [Suspect]
     Active Substance: ALBUTEROL
     Route: 055
  527. ALBUTEROL [Suspect]
     Active Substance: ALBUTEROL
     Route: 055
  528. ALBUTEROL [Suspect]
     Active Substance: ALBUTEROL
     Route: 055
  529. ALBUTEROL [Suspect]
     Active Substance: ALBUTEROL
     Route: 055
  530. SAFFLOWER [Suspect]
     Active Substance: SAFFLOWER
     Indication: Constipation
     Route: 065
  531. SAFFLOWER [Suspect]
     Active Substance: SAFFLOWER
     Route: 065
  532. HERBALS\ZINC OXIDE [Suspect]
     Active Substance: HERBALS\ZINC OXIDE
     Indication: Constipation
     Route: 065
  533. POTASSIUM CHLORATE [Suspect]
     Active Substance: POTASSIUM CHLORATE
     Indication: Product used for unknown indication
     Route: 065
  534. LIDOCAINE [Suspect]
     Active Substance: LIDOCAINE
     Indication: Constipation
     Route: 065
  535. LIDOCAINE [Suspect]
     Active Substance: LIDOCAINE
     Indication: Ventricular fibrillation
     Route: 054
  536. MINERALS\VITAMINS [Suspect]
     Active Substance: MINERALS\VITAMINS
     Indication: Vitamin supplementation
     Route: 042
  537. MINERALS\VITAMINS [Suspect]
     Active Substance: MINERALS\VITAMINS
     Route: 042
  538. INSULIN PORK\INSULIN PURIFIED PORK [Suspect]
     Active Substance: INSULIN PORK\INSULIN PURIFIED PORK
     Indication: Diabetes mellitus
     Route: 065
  539. DEXTROSE\HEPARIN SODIUM [Suspect]
     Active Substance: DEXTROSE\HEPARIN SODIUM
     Indication: Anticoagulant therapy
     Route: 065
  540. DEXTROSE\HEPARIN SODIUM [Suspect]
     Active Substance: DEXTROSE\HEPARIN SODIUM
     Route: 042
  541. DEXTROSE\HEPARIN SODIUM [Suspect]
     Active Substance: DEXTROSE\HEPARIN SODIUM
     Route: 042
  542. DEXTROSE\HEPARIN SODIUM [Suspect]
     Active Substance: DEXTROSE\HEPARIN SODIUM
     Route: 042
  543. DEXTROSE\HEPARIN SODIUM [Suspect]
     Active Substance: DEXTROSE\HEPARIN SODIUM
     Route: 065
  544. DEXTROSE\HEPARIN SODIUM [Suspect]
     Active Substance: DEXTROSE\HEPARIN SODIUM
     Route: 042
  545. FLUTICASONE FUROATE [Suspect]
     Active Substance: FLUTICASONE FUROATE
     Indication: Nutritional supplementation
     Route: 065
  546. ISOPROPYL MYRISTATE [Suspect]
     Active Substance: ISOPROPYL MYRISTATE
     Indication: Constipation
     Route: 065
  547. GLYCERYL MONOSTEARATE [Suspect]
     Active Substance: GLYCERYL MONOSTEARATE
     Indication: Constipation
     Route: 065
  548. POTASSIUM PERCHLORATE [Suspect]
     Active Substance: POTASSIUM PERCHLORATE
     Indication: Product used for unknown indication
     Route: 065
  549. POTASSIUM PERCHLORATE [Suspect]
     Active Substance: POTASSIUM PERCHLORATE
     Route: 048
  550. HERBALS\ZINC OXIDE [Suspect]
     Active Substance: HERBALS\ZINC OXIDE
     Indication: Constipation
     Route: 065
  551. PHENOXYETHANOL [Suspect]
     Active Substance: PHENOXYETHANOL
     Indication: Constipation
     Route: 065
  552. VILANTEROL [Suspect]
     Active Substance: VILANTEROL
     Indication: Dyspnoea
     Route: 048
  553. CALCIUM GLUCONATE [Suspect]
     Active Substance: CALCIUM GLUCONATE
     Indication: Product used for unknown indication
     Route: 065
  554. ALUMINUM HYDROXIDE\MAGNESIUM HYDROXIDE [Suspect]
     Active Substance: ALUMINUM HYDROXIDE\MAGNESIUM HYDROXIDE
     Indication: Constipation
     Route: 054
  555. CITRIC ACID [Suspect]
     Active Substance: CITRIC ACID MONOHYDRATE
     Indication: Nutritional supplementation
     Route: 065
  556. NATAMYCIN [Suspect]
     Active Substance: NATAMYCIN
     Indication: Bacterial infection
     Route: 065
  557. MALTOSE [Suspect]
     Active Substance: MALTOSE
     Indication: Nutritional supplementation
     Route: 042
  558. MALTOSE [Suspect]
     Active Substance: MALTOSE
     Route: 065
  559. MALTOSE [Suspect]
     Active Substance: MALTOSE
     Route: 065
  560. DEXTROSE [Suspect]
     Active Substance: DEXTROSE MONOHYDRATE
     Indication: Nutritional supplementation
     Route: 065
  561. DEXTROSE [Suspect]
     Active Substance: DEXTROSE MONOHYDRATE
     Route: 065
  562. DEXTROSE [Suspect]
     Active Substance: DEXTROSE MONOHYDRATE
     Route: 042
  563. DEXTROSE [Suspect]
     Active Substance: DEXTROSE MONOHYDRATE
     Route: 042
  564. DEXTROSE [Suspect]
     Active Substance: DEXTROSE MONOHYDRATE
     Route: 042
  565. DEXTROSE [Suspect]
     Active Substance: DEXTROSE MONOHYDRATE
     Route: 065
  566. DEXTROSE [Suspect]
     Active Substance: DEXTROSE MONOHYDRATE
     Route: 065
  567. VITAMIN A PALMITATE [Suspect]
     Active Substance: VITAMIN A PALMITATE
     Indication: Constipation
     Route: 065
  568. CHLORAMPHENICOL PALMITATE [Suspect]
     Active Substance: CHLORAMPHENICOL PALMITATE
     Indication: Bacterial infection
     Route: 065
  569. NOREPINEPHRINE BITARTRATE [Suspect]
     Active Substance: NOREPINEPHRINE BITARTRATE
     Indication: Stress
     Route: 042
  570. NOREPINEPHRINE BITARTRATE [Suspect]
     Active Substance: NOREPINEPHRINE BITARTRATE
     Indication: Nutritional supplementation
     Route: 048
  571. NOREPINEPHRINE BITARTRATE [Suspect]
     Active Substance: NOREPINEPHRINE BITARTRATE
     Route: 048
  572. NOREPINEPHRINE BITARTRATE [Suspect]
     Active Substance: NOREPINEPHRINE BITARTRATE
     Route: 048
  573. NOREPINEPHRINE BITARTRATE [Suspect]
     Active Substance: NOREPINEPHRINE BITARTRATE
     Route: 048
  574. NOREPINEPHRINE BITARTRATE [Suspect]
     Active Substance: NOREPINEPHRINE BITARTRATE
     Route: 065
  575. NOREPINEPHRINE BITARTRATE [Suspect]
     Active Substance: NOREPINEPHRINE BITARTRATE
     Route: 065
  576. NOREPINEPHRINE BITARTRATE [Suspect]
     Active Substance: NOREPINEPHRINE BITARTRATE
     Route: 042
  577. NOREPINEPHRINE BITARTRATE [Suspect]
     Active Substance: NOREPINEPHRINE BITARTRATE
     Route: 048
  578. NOREPINEPHRINE BITARTRATE [Suspect]
     Active Substance: NOREPINEPHRINE BITARTRATE
     Route: 065
  579. NOREPINEPHRINE BITARTRATE [Suspect]
     Active Substance: NOREPINEPHRINE BITARTRATE
     Route: 048
  580. NOREPINEPHRINE BITARTRATE [Suspect]
     Active Substance: NOREPINEPHRINE BITARTRATE
     Route: 042
  581. NOREPINEPHRINE BITARTRATE [Suspect]
     Active Substance: NOREPINEPHRINE BITARTRATE
     Route: 042
  582. NOREPINEPHRINE BITARTRATE [Suspect]
     Active Substance: NOREPINEPHRINE BITARTRATE
     Route: 065
  583. NOREPINEPHRINE BITARTRATE [Suspect]
     Active Substance: NOREPINEPHRINE BITARTRATE
     Route: 042
  584. NOREPINEPHRINE BITARTRATE [Suspect]
     Active Substance: NOREPINEPHRINE BITARTRATE
     Route: 048
  585. BUFEXAMAC\LIDOCAINE HYDROCHLORIDE [Suspect]
     Active Substance: BUFEXAMAC\LIDOCAINE HYDROCHLORIDE
     Indication: Constipation
     Route: 065
  586. BUFEXAMAC\LIDOCAINE HYDROCHLORIDE [Suspect]
     Active Substance: BUFEXAMAC\LIDOCAINE HYDROCHLORIDE
     Route: 054
  587. ERGOCALCIFEROL [Suspect]
     Active Substance: ERGOCALCIFEROL
     Indication: Product used for unknown indication
     Route: 065
  588. STEARYL ALCOHOL [Suspect]
     Active Substance: STEARYL ALCOHOL
     Indication: Constipation
     Route: 065
  589. DEXPANTHENOL [Suspect]
     Active Substance: DEXPANTHENOL
     Indication: Constipation
     Route: 065
  590. BETA CAROTENE [Suspect]
     Active Substance: BETA CAROTENE
     Indication: Product used for unknown indication
     Route: 065
  591. ALOE VERA LEAF [Suspect]
     Active Substance: ALOE VERA LEAF
     Indication: Constipation
     Route: 065
  592. ALOE VERA LEAF [Suspect]
     Active Substance: ALOE VERA LEAF
     Route: 065
  593. FERROUS SUCCINATE [Suspect]
     Active Substance: FERROUS SUCCINATE
     Indication: Iron deficiency
     Route: 065
  594. MAGNESIUM OXIDE [Suspect]
     Active Substance: MAGNESIUM OXIDE
     Indication: Constipation
     Route: 065
  595. MAGNESIUM OXIDE [Suspect]
     Active Substance: MAGNESIUM OXIDE
     Route: 054
  596. MAGNESIUM OXIDE [Suspect]
     Active Substance: MAGNESIUM OXIDE
     Route: 065
  597. MAGNESIUM OXIDE [Suspect]
     Active Substance: MAGNESIUM OXIDE
     Route: 065
  598. MAGNESIUM OXIDE [Suspect]
     Active Substance: MAGNESIUM OXIDE
     Route: 065
  599. TITANIUM [Suspect]
     Active Substance: TITANIUM
     Indication: Constipation
     Route: 065
  600. CHLORPHENIRAMINE MALEATE [Suspect]
     Active Substance: CHLORPHENIRAMINE MALEATE
     Indication: Thrombosis
     Route: 065
  601. METAMIZOLE SODIUM [Suspect]
     Active Substance: METAMIZOLE SODIUM
     Indication: Vitamin supplementation
     Route: 042
  602. METAMIZOLE SODIUM [Suspect]
     Active Substance: METAMIZOLE SODIUM
     Route: 065
  603. IPRATROPIUM BROMIDE [Suspect]
     Active Substance: IPRATROPIUM BROMIDE
     Indication: Dyspnoea
     Route: 065
  604. CAFFEINE [Suspect]
     Active Substance: CAFFEINE
     Indication: Nutritional supplementation
     Route: 048
  605. LANTHANUM CARBONATE [Suspect]
     Active Substance: LANTHANUM CARBONATE
     Indication: Hyperphosphataemia
     Route: 048
  606. LANTHANUM CARBONATE [Suspect]
     Active Substance: LANTHANUM CARBONATE
     Indication: Blood phosphorus increased
  607. ALUMINUM HYDROXIDE\DIMETHICONE\MAGNESIUM HYDROXIDE [Suspect]
     Active Substance: ALUMINUM HYDROXIDE\DIMETHICONE\MAGNESIUM HYDROXIDE
     Indication: Constipation
     Route: 054
  608. TRISODIUM CITRATE DIHYDRATE [Suspect]
     Active Substance: TRISODIUM CITRATE DIHYDRATE
     Indication: Thrombosis
     Route: 065
  609. RAMIPRIL [Suspect]
     Active Substance: RAMIPRIL
     Indication: Product used for unknown indication
     Route: 065
  610. CHLORPHENIRAMINE [Suspect]
     Active Substance: CHLORPHENIRAMINE
     Indication: Thrombosis
     Route: 065
  611. CHLORPHENIRAMINE [Suspect]
     Active Substance: CHLORPHENIRAMINE
     Route: 048
  612. HERBALS\PAULLINIA CUPANA SEED [Suspect]
     Active Substance: HERBALS\PAULLINIA CUPANA SEED
     Indication: Nutritional supplementation
     Route: 065
  613. HERBALS\PAULLINIA CUPANA SEED [Suspect]
     Active Substance: HERBALS\PAULLINIA CUPANA SEED
     Route: 065
  614. HERBALS\PAULLINIA CUPANA SEED [Suspect]
     Active Substance: HERBALS\PAULLINIA CUPANA SEED
     Route: 048
  615. HYDROCORTISONE HEMISUCCINATE ANHYDROUS [Suspect]
     Active Substance: HYDROCORTISONE HEMISUCCINATE ANHYDROUS
     Indication: Angioedema
     Route: 051
  616. SIMVASTATIN [Concomitant]
     Active Substance: SIMVASTATIN
     Indication: Blood cholesterol increased
     Route: 048
  617. SIMVASTATIN [Concomitant]
     Active Substance: SIMVASTATIN
     Indication: Vitamin supplementation
     Route: 048
  618. DISODIUM HYDROGEN CITRATE [Concomitant]
     Active Substance: DISODIUM HYDROGEN CITRATE
     Indication: Thrombosis
     Route: 065
  619. .BETA.-CAROTENE [Concomitant]
     Active Substance: .BETA.-CAROTENE
     Indication: Product used for unknown indication
     Route: 065
  620. RIBOFLAVIN 5^-PHOSPHATE SODIUM ANHYDROUS [Concomitant]
     Active Substance: RIBOFLAVIN 5^-PHOSPHATE SODIUM ANHYDROUS
     Indication: Product used for unknown indication
     Route: 065
  621. VITAMIN C [Concomitant]
     Active Substance: ASCORBIC ACID
     Indication: Constipation
     Route: 065
  622. SODIUM CITRATE [Concomitant]
     Active Substance: SODIUM CITRATE
     Indication: Product used for unknown indication
     Route: 065
  623. AMLODIPINE [Concomitant]
     Active Substance: AMLODIPINE BESYLATE
     Indication: Product used for unknown indication
     Route: 065
  624. CHOLECALCIFEROL [Concomitant]
     Active Substance: CHOLECALCIFEROL
     Indication: Product used for unknown indication
     Route: 065

REACTIONS (60)
  - General physical health deterioration [Fatal]
  - Abdominal distension [Fatal]
  - Ventricular fibrillation [Fatal]
  - Multiple organ dysfunction syndrome [Fatal]
  - Appendicitis [Fatal]
  - Somnolence [Fatal]
  - Nausea [Fatal]
  - Sleep disorder [Fatal]
  - Hypophosphataemia [Fatal]
  - Dry mouth [Fatal]
  - Diabetes mellitus [Fatal]
  - Chronic obstructive pulmonary disease [Fatal]
  - Dyspnoea [Fatal]
  - Blood cholesterol increased [Fatal]
  - Hyponatraemia [Fatal]
  - Swelling [Fatal]
  - Sepsis [Fatal]
  - Abdominal pain [Fatal]
  - Pulmonary embolism [Fatal]
  - Constipation [Fatal]
  - Bacterial infection [Fatal]
  - Vomiting [Fatal]
  - Neuralgia [Fatal]
  - Stress [Fatal]
  - Cardiogenic shock [Fatal]
  - Iron deficiency [Fatal]
  - Anaemia [Fatal]
  - Condition aggravated [Fatal]
  - Myasthenia gravis [Fatal]
  - Appendicolith [Fatal]
  - Drug intolerance [Fatal]
  - Ascites [Fatal]
  - Thrombosis [Fatal]
  - Gout [Fatal]
  - Hyperphosphataemia [Fatal]
  - Analgesic therapy [Fatal]
  - Drug therapy [Fatal]
  - Sleep disorder therapy [Fatal]
  - Ulcer [Fatal]
  - Intentional product misuse [Fatal]
  - Incorrect route of product administration [Fatal]
  - Off label use [Fatal]
  - Blood calcium increased [Fatal]
  - End stage renal disease [Fatal]
  - Musculoskeletal stiffness [Fatal]
  - Activated partial thromboplastin time prolonged [Fatal]
  - Blood creatinine increased [Fatal]
  - Oedema peripheral [Fatal]
  - Lower respiratory tract infection [Fatal]
  - Total lung capacity decreased [Fatal]
  - Pneumonia [Fatal]
  - Aortic stenosis [Fatal]
  - Lung opacity [Fatal]
  - Blood test abnormal [Fatal]
  - Bacteroides infection [Fatal]
  - Pleural effusion [Fatal]
  - Troponin increased [Fatal]
  - Drug ineffective [Fatal]
  - Hypertension [Fatal]
  - Drug hypersensitivity [Fatal]

NARRATIVE: CASE EVENT DATE: 20210605
